FAERS Safety Report 9126555 (Version 3)
Quarter: 2013Q1

REPORT INFORMATION
  Report Type: Report from Study
  Country: BR (occurrence: BR)
  Receive Date: 20130117
  Receipt Date: 20130312
  Transmission Date: 20140127
  Serious: Yes (Hospitalization, Other)
  Sender: FDA-Public Use
  Company Number: BR-ABBOTT-13P-020-1035425-00

PATIENT
  Sex: Female
  Weight: 70 kg

DRUGS (4)
  1. HUMIRA [Suspect]
     Indication: RHEUMATOID ARTHRITIS
     Route: 058
     Dates: start: 20120105
  2. LAMITOR [Concomitant]
     Indication: AFFECTIVE DISORDER
     Route: 048
  3. ZETRON [Concomitant]
     Indication: AFFECTIVE DISORDER
     Route: 048
  4. ARAVA [Concomitant]
     Indication: RHEUMATOID ARTHRITIS
     Route: 048
     Dates: start: 201207

REACTIONS (4)
  - Endometriosis [Recovering/Resolving]
  - Endometriosis [Not Recovered/Not Resolved]
  - Procedural pain [Unknown]
  - Fallopian tube disorder [Unknown]
